FAERS Safety Report 9657062 (Version 1)
Quarter: 2013Q4

REPORT INFORMATION
  Report Type: Spontaneous
  Country: US (occurrence: None)
  Receive Date: 20131029
  Receipt Date: 20131029
  Transmission Date: 20140711
  Serious: Yes (Hospitalization)
  Sender: FDA-Public Use
  Company Number: None

PATIENT
  Age: 82 Year
  Sex: Male
  Weight: 92 kg

DRUGS (15)
  1. WARFARIN [Suspect]
     Indication: ATRIAL FIBRILLATION
     Route: 048
     Dates: end: 20110823
  2. WARFARIN [Suspect]
     Indication: DEEP VEIN THROMBOSIS
     Route: 048
     Dates: end: 20110823
  3. AVAPRO [Concomitant]
  4. CHOLESTYRAMINE [Concomitant]
  5. DIGOXIN [Concomitant]
  6. ASPIRIN [Concomitant]
  7. LOMOTIL [Concomitant]
  8. CYMBALTA [Concomitant]
  9. FUROSEMIDE [Concomitant]
  10. GLIMEPRIDE [Concomitant]
  11. HYDRALAZINE [Concomitant]
  12. LIPITOR [Concomitant]
  13. METOPROLOL [Concomitant]
  14. POTASSIUM CHLORIDE [Concomitant]
  15. TRIGOSAMINE [Concomitant]

REACTIONS (7)
  - Renal failure acute [None]
  - Anaemia [None]
  - International normalised ratio increased [None]
  - Epistaxis [None]
  - Procedural haemorrhage [None]
  - Cardiac disorder [None]
  - Melaena [None]
